FAERS Safety Report 4665215-6 (Version None)
Quarter: 2005Q2

REPORT INFORMATION
  Report Type: 
  Country: None (occurrence: None)
  Receive Date: 20050518
  Receipt Date: 20050512
  Transmission Date: 20051028
  Serious: Yes (Other)
  Sender: FDA-Public Use
  Company Number: US-MERCK-0505USA01747

PATIENT
  Age: 49 Year
  Sex: Female

DRUGS (2)
  1. ZETIA [Suspect]
     Indication: LOW DENSITY LIPOPROTEIN INCREASED
     Route: 048
  2. TRICOR [Concomitant]
     Route: 065

REACTIONS (2)
  - RENAL FAILURE [None]
  - RHABDOMYOLYSIS [None]
